FAERS Safety Report 4495951-6 (Version None)
Quarter: 2004Q4

REPORT INFORMATION
  Report Type: 
  Country: None (occurrence: None)
  Receive Date: 20040927
  Receipt Date: 20040616
  Transmission Date: 20050328
  Serious: No
  Sender: FDA-Public Use
  Company Number: USA040566417

PATIENT
  Age: 14 Year
  Sex: Female
  Weight: 82 kg

DRUGS (2)
  1. STRATTERA [Suspect]
     Indication: ATTENTION DEFICIT/HYPERACTIVITY DISORDER
     Dosage: 80 MG DAY
     Dates: start: 20040101
  2. ADDERALL 10 [Concomitant]

REACTIONS (2)
  - PULSE PRESSURE INCREASED [None]
  - TACHYCARDIA [None]
